FAERS Safety Report 11604752 (Version 1)
Quarter: 2015Q4

REPORT INFORMATION
  Report Type: Spontaneous
  Country: US (occurrence: None)
  Receive Date: 20151006
  Receipt Date: 20151006
  Transmission Date: 20160304
  Serious: Yes (Hospitalization, Disabling)
  Sender: FDA-Public Use
  Company Number: None

PATIENT
  Age: 69 Year
  Sex: Female
  Weight: 58.97 kg

DRUGS (11)
  1. DEXILANT [Concomitant]
     Active Substance: DEXLANSOPRAZOLE
  2. PROGESTERONE. [Concomitant]
     Active Substance: PROGESTERONE
  3. N-ACETYLCYSTEINE [Concomitant]
     Active Substance: ACETYLCYSTEINE
  4. NEURONTIN [Concomitant]
     Active Substance: GABAPENTIN
  5. CELEBREX [Concomitant]
     Active Substance: CELECOXIB
  6. ZANTAC [Concomitant]
     Active Substance: RANITIDINE HYDROCHLORIDE
  7. LYRICA [Suspect]
     Active Substance: PREGABALIN
     Indication: FIBROMYALGIA
     Route: 048
  8. CYMBALTA [Concomitant]
     Active Substance: DULOXETINE HYDROCHLORIDE
  9. SINGULAIR [Concomitant]
     Active Substance: MONTELUKAST SODIUM
  10. ALLEGRA [Concomitant]
     Active Substance: FEXOFENADINE HYDROCHLORIDE
  11. ESTROGEN [Concomitant]
     Active Substance: ESTRONE\SUS SCROFA OVARY

REACTIONS (2)
  - Obsessive-compulsive disorder [None]
  - Depression [None]
